FAERS Safety Report 5767224-2 (Version None)
Quarter: 2008Q2

REPORT INFORMATION
  Report Type: 
  Country: None (occurrence: None)
  Receive Date: 20080611
  Receipt Date: 20080611
  Transmission Date: 20081010
  Serious: Yes (Hospitalization)
  Sender: FDA-Public Use
  Company Number: None

PATIENT
  Age: 61 Year
  Sex: Male
  Weight: 78 kg

DRUGS (2)
  1. ERLOTINIB TABLET [Suspect]
     Indication: NON-SMALL CELL LUNG CANCER
     Dosage: 150 MG, QD ORAL
     Route: 048
     Dates: start: 20080424, end: 20080508
  2. FULVESTRANT [Suspect]
     Dosage: 250 MG IMX2, D1, 28, 57, QM
     Route: 030
     Dates: start: 20080424, end: 20080424

REACTIONS (3)
  - CONFUSIONAL STATE [None]
  - DISEASE PROGRESSION [None]
  - METASTASES TO CENTRAL NERVOUS SYSTEM [None]
